FAERS Safety Report 13520853 (Version 2)
Quarter: 2017Q2

REPORT INFORMATION
  Report Type: Spontaneous
  Country: US (occurrence: US)
  Receive Date: 20170508
  Receipt Date: 20170523
  Transmission Date: 20170830
  Serious: No
  Sender: FDA-Public Use
  Company Number: US-ASTRAZENECA-2017SE45031

PATIENT
  Sex: Male

DRUGS (1)
  1. BYDUREON [Suspect]
     Active Substance: EXENATIDE
     Dosage: 2.0MG UNKNOWN
     Route: 065
     Dates: start: 201506

REACTIONS (5)
  - Waist circumference increased [Unknown]
  - Injection site nodule [Unknown]
  - Injection site extravasation [Unknown]
  - Drug administration error [Unknown]
  - Device leakage [Unknown]
